FAERS Safety Report 20570498 (Version 1)
Quarter: 2022Q1

REPORT INFORMATION
  Report Type: Spontaneous
  Country: US (occurrence: US)
  Receive Date: 20220309
  Receipt Date: 20220309
  Transmission Date: 20220423
  Serious: No
  Sender: FDA-Public Use
  Company Number: US-BIOVITRUM-2022US03173

PATIENT
  Sex: Female
  Weight: 6 kg

DRUGS (8)
  1. SYNAGIS [Suspect]
     Active Substance: PALIVIZUMAB
     Indication: Heart disease congenital
     Dates: start: 20211103
  2. SYNAGIS [Suspect]
     Active Substance: PALIVIZUMAB
     Indication: Cardiac disorder
  3. SYNAGIS [Suspect]
     Active Substance: PALIVIZUMAB
     Indication: Interruption of aortic arch
  4. SYNAGIS [Suspect]
     Active Substance: PALIVIZUMAB
     Indication: Cardiomyopathy
  5. SPIRONOLACTONE [Concomitant]
     Active Substance: SPIRONOLACTONE
     Dosage: 25 MG/5ML ORAL SUSP
  6. DIGOXIN [Concomitant]
     Active Substance: DIGOXIN
     Dosage: 50 MCG/ML SOLUTION
  7. LASIX [Concomitant]
     Active Substance: FUROSEMIDE
  8. VITAMIN D3 [Concomitant]
     Active Substance: CHOLECALCIFEROL
     Dosage: 10MCG/5ML LIQUID

REACTIONS (1)
  - Somnolence [Unknown]
